FAERS Safety Report 6370283-X (Version None)
Quarter: 2009Q3

REPORT INFORMATION
  Report Type: 
  Country: None (occurrence: None)
  Receive Date: 20090921
  Receipt Date: 20090921
  Transmission Date: 20100115
  Serious: No
  Sender: FDA-Public Use
  Company Number: None

PATIENT
  Age: 22 Year
  Sex: Female
  Weight: 77.7465 kg

DRUGS (1)
  1. CIPRO [Suspect]
     Indication: ACUTE SINUSITIS
     Dosage: 500MG (1)12 H PO
     Route: 048
     Dates: start: 20090817, end: 20090827

REACTIONS (1)
  - PAIN IN EXTREMITY [None]
